FAERS Safety Report 5246551-1 (Version None)
Quarter: 2007Q1

REPORT INFORMATION
  Report Type: 
  Country: None (occurrence: None)
  Receive Date: 20070226
  Receipt Date: 20070226
  Transmission Date: 20070707
  Serious: Yes (Hospitalization)
  Sender: FDA-Public Use
  Company Number: None

PATIENT
  Age: 52 Year
  Sex: Male
  Weight: 163.9 kg

DRUGS (17)
  1. MORPHINE [Suspect]
     Indication: POSTOPERATIVE ANALGESIA
     Dosage: SEE IMAGE
     Route: 042
     Dates: start: 20060929, end: 20060930
  2. PERCOCET [Suspect]
     Indication: POSTOPERATIVE ANALGESIA
     Dosage: SEE IMAGE
     Dates: start: 20060929, end: 20060930
  3. WELLBUTRIN [Concomitant]
  4. DUOUEB [Concomitant]
  5. GLUCOTROL XL [Concomitant]
  6. SYNTHROID [Concomitant]
  7. ADVAIR DISKUS 100/50 [Concomitant]
  8. LYRICA [Concomitant]
  9. NICOTINE [Concomitant]
  10. PROTONIX [Concomitant]
  11. AVANDIA [Concomitant]
  12. LOPRESSOR [Concomitant]
  13. IMDUR [Concomitant]
  14. LISINOPRIL [Concomitant]
  15. CRESTOR [Concomitant]
  16. REQUIP [Concomitant]
  17. PAXIL [Concomitant]

REACTIONS (3)
  - HYPERCAPNIA [None]
  - HYPOXIA [None]
  - UNRESPONSIVE TO STIMULI [None]
